FAERS Safety Report 23759008 (Version 1)
Quarter: 2024Q2

REPORT INFORMATION
  Report Type: Spontaneous
  Country: US (occurrence: None)
  Receive Date: 20240418
  Receipt Date: 20240418
  Transmission Date: 20240715
  Serious: No
  Sender: FDA-Public Use
  Company Number: US-ROCHE-3355828

PATIENT
  Sex: Female

DRUGS (4)
  1. KADCYLA [Suspect]
     Active Substance: ADO-TRASTUZUMAB EMTANSINE
     Indication: Hormone receptor positive breast cancer
     Dosage: PATIENT STATED SHE RECEIVED IT THROUGH HER PORT ;ONGOING: NO
     Route: 042
     Dates: start: 202101, end: 202110
  2. METOPROLOL [Concomitant]
     Active Substance: METOPROLOL
     Indication: Blood pressure measurement
     Dosage: THE PATIENT STATED SHE PROBABLY STARTED -JAN-2020 + SHE TAKES A HALF TABLET TWICE A DAY
     Route: 048
  3. ANASTROZOLE [Concomitant]
     Active Substance: ANASTROZOLE
     Dosage: THE PATIENT STATED SHE PROBABLY BEGAN -SEP-2020
     Route: 048
  4. ROSUVASTATIN [Concomitant]
     Active Substance: ROSUVASTATIN
     Indication: Blood cholesterol
     Route: 048
     Dates: start: 202001

REACTIONS (4)
  - Neuropathy peripheral [Not Recovered/Not Resolved]
  - Clostridium difficile infection [Unknown]
  - Weight decreased [Unknown]
  - Nerve injury [Unknown]
